FAERS Safety Report 14989116 (Version 9)
Quarter: 2020Q2

REPORT INFORMATION
  Report Type: Report from Study
  Country: CA (occurrence: CA)
  Receive Date: 20180608
  Receipt Date: 20200428
  Transmission Date: 20200713
  Serious: Yes (Disabling, Other)
  Sender: FDA-Public Use
  Company Number: CA-JNJFOC-20180600686

PATIENT
  Age: 55 Year
  Sex: Male
  Weight: 107.05 kg

DRUGS (6)
  1. REMICADE [Suspect]
     Active Substance: INFLIXIMAB
     Indication: COLITIS ULCERATIVE
     Route: 042
  2. REMICADE [Suspect]
     Active Substance: INFLIXIMAB
     Indication: FISTULA
     Dosage: UNIT DOSE-900 MG
     Route: 042
     Dates: start: 20141030
  3. REMICADE [Suspect]
     Active Substance: INFLIXIMAB
     Dosage: UNIT DOSE-900 MG
     Route: 042
     Dates: start: 20141030
  4. REMICADE [Suspect]
     Active Substance: INFLIXIMAB
     Dosage: UNIT DOSE-900 MG
     Route: 042
     Dates: start: 20141030
  5. WARFARIN [Concomitant]
     Active Substance: WARFARIN
     Indication: ANTICOAGULANT THERAPY
     Route: 048
  6. REMICADE [Suspect]
     Active Substance: INFLIXIMAB
     Indication: CROHN^S DISEASE
     Dosage: UNIT DOSE-900 MG
     Route: 042
     Dates: start: 20141030

REACTIONS (6)
  - Discomfort [Unknown]
  - Crohn^s disease [Unknown]
  - Infected fistula [Not Recovered/Not Resolved]
  - Fistula discharge [Not Recovered/Not Resolved]
  - Drug ineffective [Unknown]
  - Haematochezia [Unknown]

NARRATIVE: CASE EVENT DATE: 2014
